FAERS Safety Report 24141475 (Version 1)
Quarter: 2024Q3

REPORT INFORMATION
  Report Type: Report from Study
  Country: GB (occurrence: GB)
  Receive Date: 20240726
  Receipt Date: 20240726
  Transmission Date: 20241017
  Serious: Yes (Other)
  Sender: RANBAXY
  Company Number: GB-SUN PHARMACEUTICAL INDUSTRIES LTD-2024R1-459154

PATIENT
  Sex: Female

DRUGS (1)
  1. METFORMIN [Suspect]
     Active Substance: METFORMIN HYDROCHLORIDE
     Indication: Gestational diabetes
     Route: 065

REACTIONS (1)
  - Exposure during pregnancy [Unknown]
